FAERS Safety Report 6386433-5 (Version None)
Quarter: 2009Q3

REPORT INFORMATION
  Report Type: 
  Country: None (occurrence: None)
  Receive Date: 20090930
  Receipt Date: 20090930
  Transmission Date: 20100115
  Serious: Yes (Other)
  Sender: FDA-Public Use
  Company Number: None

PATIENT
  Age: 66 Year
  Sex: Female
  Weight: 95.9 kg

DRUGS (1)
  1. ROCEPHIN [Suspect]
     Indication: MENINGITIS BACTERIAL
     Dosage: 2G TWICE DAILY IV
     Route: 042
     Dates: start: 20090819, end: 20090826

REACTIONS (2)
  - HYPERSENSITIVITY [None]
  - LEUKOCYTOSIS [None]
